FAERS Safety Report 22604822 (Version 1)
Quarter: 2023Q2

REPORT INFORMATION
  Report Type: Spontaneous
  Country: FR (occurrence: FR)
  Receive Date: 20230615
  Receipt Date: 20230615
  Transmission Date: 20230722
  Serious: Yes (Hospitalization)
  Sender: FDA-Public Use
  Company Number: None

PATIENT
  Age: 91 Year
  Sex: Female
  Weight: 55 kg

DRUGS (6)
  1. CITALOPRAM [Suspect]
     Active Substance: CITALOPRAM HYDROBROMIDE
     Indication: Bipolar disorder
     Dosage: 10 MILLIGRAM, QD
     Route: 048
     Dates: start: 2020, end: 20230328
  2. RISPERIDONE [Suspect]
     Active Substance: RISPERIDONE
     Indication: Bipolar disorder
     Dosage: 1.5 MILLIGRAM, QD
     Route: 048
     Dates: start: 2023, end: 20230328
  3. CETIRIZINE [Suspect]
     Active Substance: CETIRIZINE HYDROCHLORIDE
     Indication: Product used for unknown indication
     Dosage: 10 MILLIGRAM, QD
     Route: 048
     Dates: end: 20230328
  4. LETROZOLE [Suspect]
     Active Substance: LETROZOLE
     Indication: Breast cancer
     Dosage: 2.5 MILLIGRAM, QD
     Route: 048
     Dates: start: 202209, end: 20230328
  5. OXAZEPAM [Suspect]
     Active Substance: OXAZEPAM
     Indication: Anxiety
     Dosage: 30 MILLIGRAM, QD
     Route: 048
     Dates: start: 2014
  6. TRIMEPRAZINE [Suspect]
     Active Substance: TRIMEPRAZINE
     Indication: Bipolar disorder
     Dosage: 5 DROP (1/12 MILLILITRE), QD
     Route: 048
     Dates: start: 2023, end: 20230328

REACTIONS (2)
  - Depression [Recovered/Resolved]
  - Pruritus [Recovered/Resolved]

NARRATIVE: CASE EVENT DATE: 20230301
